FAERS Safety Report 20492170 (Version 4)
Quarter: 2022Q1

REPORT INFORMATION
  Report Type: Report from Study
  Country: US (occurrence: US)
  Receive Date: 20220218
  Receipt Date: 20220314
  Transmission Date: 20220423
  Serious: No
  Sender: FDA-Public Use
  Company Number: US-NOVARTISTESTPH-NVSC2022US036930

PATIENT
  Sex: Male

DRUGS (1)
  1. ZOLGENSMA [Suspect]
     Active Substance: ONASEMNOGENE ABEPARVOVEC-XIOI
     Indication: Spinal muscular atrophy
     Dosage: UNK, ONCE/SINGLE
     Route: 042
     Dates: start: 20201125, end: 20201125

REACTIONS (5)
  - COVID-19 [Unknown]
  - Cough [Unknown]
  - Metapneumovirus infection [Unknown]
  - Rhinorrhoea [Unknown]
  - Nasopharyngitis [Unknown]
